FAERS Safety Report 17850029 (Version 1)
Quarter: 2020Q2

REPORT INFORMATION
  Report Type: Spontaneous
  Country: JP (occurrence: JP)
  Receive Date: 20200602
  Receipt Date: 20200602
  Transmission Date: 20200714
  Serious: Yes (Death, Hospitalization, Other)
  Sender: FDA-Public Use
  Company Number: JP-ACTELION-A-CH2020-205584

PATIENT
  Age: 51 Year
  Sex: Female

DRUGS (7)
  1. EPOPROSTENOL SODIUM. [Suspect]
     Active Substance: EPOPROSTENOL SODIUM
     Dosage: 34.4 NG/KG, PER MIN
     Route: 042
  2. OPSUMIT [Suspect]
     Active Substance: MACITENTAN
     Indication: PULMONARY ARTERIAL HYPERTENSION
     Route: 048
  3. RIOCIGUAT. [Concomitant]
     Active Substance: RIOCIGUAT
  4. SILDENAFIL. [Concomitant]
     Active Substance: SILDENAFIL
  5. EPOPROSTENOL SODIUM. [Suspect]
     Active Substance: EPOPROSTENOL SODIUM
     Dosage: 0.5 NG/KG, PER MIN
     Route: 042
  6. EPOPROSTENOL SODIUM. [Suspect]
     Active Substance: EPOPROSTENOL SODIUM
     Indication: PULMONARY ARTERIAL HYPERTENSION
     Dosage: 0.25 NG/KG, PER MIN
     Route: 042
  7. EPOPROSTENOL SODIUM. [Suspect]
     Active Substance: EPOPROSTENOL SODIUM
     Dosage: 27 NG/KG, PER MIN
     Route: 042

REACTIONS (16)
  - Drug-induced liver injury [Unknown]
  - Rash [Unknown]
  - Diarrhoea [Unknown]
  - Cardiac failure [Fatal]
  - Hepatosplenomegaly [Unknown]
  - Condition aggravated [Unknown]
  - Hepatic fibrosis [Unknown]
  - Epistaxis [Unknown]
  - Anaemia [Unknown]
  - Hepatic function abnormal [Unknown]
  - Abdominal distension [Unknown]
  - Pruritus [Unknown]
  - Dyspnoea exertional [Unknown]
  - Lip swelling [Unknown]
  - Thrombocytopenia [Unknown]
  - Ascites [Unknown]
